FAERS Safety Report 10544520 (Version 1)
Quarter: 2014Q4

REPORT INFORMATION
  Report Type: Spontaneous
  Country: GB (occurrence: None)
  Receive Date: 20141016
  Receipt Date: 20141016
  Transmission Date: 20150529
  Serious: Yes (Disabling)
  Sender: FDA-Public Use
  Company Number: 2014GMK010173

PATIENT
  Age: 85 Year
  Sex: Female

DRUGS (12)
  1. OXYCODONE [Concomitant]
     Active Substance: OXYCODONE
  2. GABAPENTIN (GABAPENTIN) UNKNOWN [Suspect]
     Active Substance: GABAPENTIN
     Indication: NEURALGIA
     Dosage: 100 MG, OD, ORAL
     Route: 048
     Dates: start: 20140616
  3. ATENOLOL. [Concomitant]
     Active Substance: ATENOLOL
  4. DOXAZOSIN [Concomitant]
     Active Substance: DOXAZOSIN\DOXAZOSIN MESYLATE
  5. ISOSORBIDE MONONITRATE. [Concomitant]
     Active Substance: ISOSORBIDE MONONITRATE
  6. ASPIRIN (ACETYLSALICYLIC ACID) [Concomitant]
     Active Substance: ASPIRIN
  7. LAXIDO APELSIN (MACROGOL 3350, POTASSIUM CHLORIDE, SODIUM BICARBONATE, SODIUM CHLORIDE) [Concomitant]
  8. SIMVASTATIN. [Concomitant]
     Active Substance: SIMVASTATIN
  9. BENDROFLUMETHIAZIDE [Concomitant]
     Active Substance: BENDROFLUMETHIAZIDE
  10. TRIMETHOPRIM. [Concomitant]
     Active Substance: TRIMETHOPRIM
  11. DIAZEPAM. [Concomitant]
     Active Substance: DIAZEPAM
  12. OMEPRAZOLE. [Concomitant]
     Active Substance: OMEPRAZOLE

REACTIONS (2)
  - Hyperaesthesia [None]
  - Arthralgia [None]

NARRATIVE: CASE EVENT DATE: 20140622
